FAERS Safety Report 21788864 (Version 1)
Quarter: 2022Q4

REPORT INFORMATION
  Report Type: Spontaneous
  Country: US (occurrence: None)
  Receive Date: 20221227
  Receipt Date: 20221227
  Transmission Date: 20230113
  Serious: Yes (Hospitalization)
  Sender: FDA-Public Use
  Company Number: None

PATIENT
  Sex: Female

DRUGS (2)
  1. HYDROXYUREA [Suspect]
     Active Substance: HYDROXYUREA
     Indication: Sickle cell trait
     Dosage: FREQUENCY : TWICE A DAY;?
     Route: 048
     Dates: start: 20210120
  2. HYDROXYUREA [Suspect]
     Active Substance: HYDROXYUREA
     Dosage: FREQUENCY : TWICE A DAY;?
     Route: 048
     Dates: start: 20210120

REACTIONS (1)
  - Hernia repair [None]
